FAERS Safety Report 11198872 (Version 2)
Quarter: 2015Q3

REPORT INFORMATION
  Report Type: Spontaneous
  Country: CN (occurrence: CN)
  Receive Date: 20150618
  Receipt Date: 20150723
  Transmission Date: 20151125
  Serious: Yes (Life-Threatening)
  Sender: FDA-Public Use
  Company Number: CN-009507513-1506CHN007351

PATIENT
  Age: 15 Year
  Sex: Female

DRUGS (2)
  1. MARVELON [Suspect]
     Active Substance: DESOGESTREL\ETHINYL ESTRADIOL
     Indication: ANAEMIA
  2. MARVELON [Suspect]
     Active Substance: DESOGESTREL\ETHINYL ESTRADIOL
     Indication: UTERINE HAEMORRHAGE
     Dosage: UNK
     Route: 048

REACTIONS (4)
  - Circumstance or information capable of leading to medication error [Unknown]
  - Product quality issue [Unknown]
  - Drug administration error [Unknown]
  - Drug prescribing error [Unknown]
